FAERS Safety Report 9499566 (Version 2)
Quarter: 2013Q3

REPORT INFORMATION
  Report Type: Spontaneous
  Country: US (occurrence: None)
  Receive Date: 20130107
  Receipt Date: 20130724
  Transmission Date: 20140515
  Serious: No
  Sender: FDA-Public Use
  Company Number: PHEH2012US020734

PATIENT
  Sex: Female
  Weight: 99.8 kg

DRUGS (2)
  1. GILENYA [Suspect]
     Indication: MULTIPLE SCLEROSIS
     Route: 048
     Dates: start: 20111206
  2. AMPYRA (FAMPRIDINE) [Concomitant]

REACTIONS (3)
  - Acne [None]
  - Weight increased [None]
  - Decreased appetite [None]
